FAERS Safety Report 15397351 (Version 1)
Quarter: 2018Q3

REPORT INFORMATION
  Report Type: Spontaneous
  Country: GB (occurrence: GB)
  Receive Date: 20180918
  Receipt Date: 20180918
  Transmission Date: 20181010
  Serious: Yes (Other)
  Sender: FDA-Public Use
  Company Number: PHHY2018GB100586

PATIENT
  Sex: Female

DRUGS (2)
  1. VALACICLOVIR [Suspect]
     Active Substance: VALACYCLOVIR HYDROCHLORIDE
     Indication: HERPES VIRUS INFECTION
     Dosage: HAS BEEN TAKING BOTH PRODUCTS ON AND OFF FOR ABOUT 10
     Route: 065
  2. ACICLOVIR [Suspect]
     Active Substance: ACYCLOVIR
     Indication: HERPES VIRUS INFECTION
     Dosage: HAS BEEN TAKING BOTH PRODUCTS ON AND OFF FOR ABOUT 10
     Route: 065

REACTIONS (1)
  - Antiphospholipid syndrome [Unknown]

NARRATIVE: CASE EVENT DATE: 20180830
